FAERS Safety Report 7786540-6 (Version None)
Quarter: 2011Q3

REPORT INFORMATION
  Report Type: 
  Country: None (occurrence: None)
  Receive Date: 20110929
  Receipt Date: 20110927
  Transmission Date: 20111222
  Serious: Yes (Hospitalization)
  Sender: FDA-Public Use
  Company Number: KR-GLAXOSMITHKLINE-B0644193B

PATIENT

DRUGS (2)
  1. LAMIVUDINE [Suspect]
     Route: 015
  2. HEPSERA [Suspect]
     Route: 015

REACTIONS (3)
  - EXPOSURE DURING BREAST FEEDING [None]
  - MATERNAL EXPOSURE DURING PREGNANCY [None]
  - JAUNDICE [None]
